FAERS Safety Report 23710185 (Version 1)
Quarter: 2024Q2

REPORT INFORMATION
  Report Type: Report from Study
  Country: CO (occurrence: CO)
  Receive Date: 20240405
  Receipt Date: 20240405
  Transmission Date: 20240716
  Serious: Yes (Other)
  Sender: FDA-Public Use
  Company Number: CO-JNJFOC-20240315371

PATIENT
  Age: 68 Year
  Sex: Female
  Weight: 74 kg

DRUGS (1)
  1. IMBRUVICA [Suspect]
     Active Substance: IBRUTINIB
     Indication: Chronic lymphocytic leukaemia
     Route: 048
     Dates: start: 20221202

REACTIONS (7)
  - Pancreatic atrophy [Unknown]
  - Laboratory test abnormal [Unknown]
  - Cholelithiasis [Unknown]
  - Lymphadenopathy [Unknown]
  - Hiatus hernia [Unknown]
  - Sinusitis [Unknown]
  - Kidney malrotation [Unknown]

NARRATIVE: CASE EVENT DATE: 20240301
